FAERS Safety Report 8984635 (Version 2)
Quarter: 2012Q4

REPORT INFORMATION
  Report Type: 
  Country: BR (occurrence: BR)
  Receive Date: 20121226
  Receipt Date: 20121227
  Transmission Date: 20130627
  Serious: Yes (Death)
  Sender: FDA-Public Use
  Company Number: PHHY2012BR119359

PATIENT
  Sex: Male

DRUGS (4)
  1. TRILEPTAL [Suspect]
     Indication: BRAIN CANCER METASTATIC
     Dosage: 300 mg, TID
  2. GARDENAL [Concomitant]
     Indication: NEOPLASM MALIGNANT
     Dosage: 2 DF, daily
     Route: 048
  3. FENOBARBITAL [Concomitant]
     Dosage: 1 DF, daily
     Route: 048
  4. OMEPRAZOLE [Concomitant]
     Indication: ABDOMINAL DISCOMFORT
     Dosage: 1 DF, daily
     Route: 048

REACTIONS (1)
  - Brain neoplasm [Fatal]
